FAERS Safety Report 15451255 (Version 1)
Quarter: 2018Q4

REPORT INFORMATION
  Report Type: Report from Study
  Country: ZA (occurrence: ZA)
  Receive Date: 20181001
  Receipt Date: 20181001
  Transmission Date: 20190204
  Serious: Yes (Hospitalization, Other)
  Sender: FDA-Public Use
  Company Number: PHHY2018ZA105833

PATIENT
  Sex: Female

DRUGS (1)
  1. ZOMEVEK [Suspect]
     Active Substance: VALSARTAN
     Indication: HYPERTENSION
     Dosage: 80 MG, UNK
     Route: 048
     Dates: start: 201807

REACTIONS (2)
  - Dementia Alzheimer^s type [Unknown]
  - Seizure [Unknown]
